FAERS Safety Report 10592397 (Version 2)
Quarter: 2014Q4

REPORT INFORMATION
  Report Type: Spontaneous
  Country: US (occurrence: None)
  Receive Date: 20141117
  Receipt Date: 20141124
  Transmission Date: 20150529
  Serious: Yes (Other)
  Sender: FDA-Public Use
  Company Number: 2014-US-014384

PATIENT
  Age: 63 Year
  Sex: Male
  Weight: 88.4 kg

DRUGS (13)
  1. METOPROLOL (METOPROLOL) [Concomitant]
     Active Substance: METOPROLOL
  2. ACTONEL (RISEDRONATE SODIUM) [Concomitant]
  3. METHADONE [Concomitant]
     Active Substance: METHADONE HYDROCHLORIDE
  4. INSULIN (INSULIN) [Concomitant]
     Active Substance: INSULIN NOS
  5. SYNTHROID [Concomitant]
     Active Substance: LEVOTHYROXINE SODIUM
  6. NEXIUM [Concomitant]
     Active Substance: ESOMEPRAZOLE MAGNESIUM
  7. ASPIRIN (ACETYLSALICYLIC ACID) [Concomitant]
     Active Substance: ASPIRIN
  8. HYDROCODONE/ACETAMINOPHEN (HYDROCODONE, PARACETAMOL) [Concomitant]
  9. DIOVAN [Concomitant]
     Active Substance: VALSARTAN
  10. OXYCODONE (OXYCODONE HYDROCHLORIDE) [Concomitant]
  11. GABAPENTIN (GABAPENTIN) [Concomitant]
     Active Substance: GABAPENTIN
  12. XYREM [Suspect]
     Active Substance: SODIUM OXYBATE
     Indication: INSOMNIA
     Dates: start: 20141031, end: 20141102
  13. ATORVASTATIN (ATORVASTATIN CALCIUM) [Concomitant]

REACTIONS (9)
  - Blood glucose increased [None]
  - Insomnia [None]
  - Tremor [None]
  - Poor quality sleep [None]
  - Weight decreased [None]
  - Off label use [None]
  - Neuropathy peripheral [None]
  - Condition aggravated [None]
  - Abdominal pain upper [None]

NARRATIVE: CASE EVENT DATE: 20141031
